FAERS Safety Report 21649504 (Version 1)
Quarter: 2022Q4

REPORT INFORMATION
  Report Type: Spontaneous
  Country: US (occurrence: US)
  Receive Date: 20221128
  Receipt Date: 20221128
  Transmission Date: 20230113
  Serious: No
  Sender: FDA-Public Use
  Company Number: US-SA-SAC20221123000318

PATIENT
  Age: 29 Year
  Sex: Female

DRUGS (1)
  1. DUPIXENT [Suspect]
     Active Substance: DUPILUMAB
     Indication: Dermatitis atopic
     Dosage: 300 MG, QOW
     Route: 058
     Dates: start: 20221014

REACTIONS (7)
  - Inflammation [Unknown]
  - Swelling [Unknown]
  - Pruritus [Unknown]
  - Erythema [Unknown]
  - Eye irritation [Unknown]
  - Condition aggravated [Unknown]
  - Injection site erythema [Unknown]
